FAERS Safety Report 20385432 (Version 3)
Quarter: 2022Q2

REPORT INFORMATION
  Report Type: Spontaneous
  Country: US (occurrence: US)
  Receive Date: 20220127
  Receipt Date: 20220418
  Transmission Date: 20220721
  Serious: Yes (Hospitalization, Other)
  Sender: FDA-Public Use
  Company Number: US-PFIZER INC-202200131407

PATIENT
  Age: 77 Year
  Sex: Male

DRUGS (1)
  1. VYNDAMAX [Suspect]
     Active Substance: TAFAMIDIS
     Indication: Cardiac amyloidosis
     Dosage: ONE CAPSULE A DAY

REACTIONS (4)
  - Cerebrovascular accident [Not Recovered/Not Resolved]
  - Hallucination [Unknown]
  - Headache [Unknown]
  - Body height decreased [Unknown]

NARRATIVE: CASE EVENT DATE: 20220118
